FAERS Safety Report 16790359 (Version 1)
Quarter: 2019Q4

REPORT INFORMATION
  Report Type: Spontaneous
  Country: US (occurrence: US)
  Receive Date: 20190909
  Receipt Date: 20190909
  Transmission Date: 20200122
  Serious: Yes (Other)
  Sender: FDA-Public Use
  Company Number: None

PATIENT
  Age: 39 Year
  Sex: Female

DRUGS (2)
  1. INJECTAFER [Suspect]
     Active Substance: FERRIC CARBOXYMALTOSE
  2. INJECTAFER [Concomitant]
     Active Substance: FERRIC CARBOXYMALTOSE

REACTIONS (2)
  - Pruritus [None]
  - Formication [None]

NARRATIVE: CASE EVENT DATE: 20190812
